FAERS Safety Report 11440074 (Version 1)
Quarter: 2015Q3

REPORT INFORMATION
  Report Type: Spontaneous
  Country: US (occurrence: US)
  Receive Date: 20150901
  Receipt Date: 20150901
  Transmission Date: 20151125
  Serious: No
  Sender: FDA-Public Use
  Company Number: US-ROCHE-1065389

PATIENT
  Sex: Female

DRUGS (4)
  1. RIBASPHERE [Suspect]
     Active Substance: RIBAVIRIN
     Indication: HEPATITIS C
     Dosage: IN DIVIDED DOSES
     Route: 048
  2. PEGASYS [Suspect]
     Active Substance: PEGINTERFERON ALFA-2A
     Indication: HEPATITIS C
     Route: 058
     Dates: start: 20111024
  3. RIBASPHERE [Suspect]
     Active Substance: RIBAVIRIN
     Route: 048
  4. PEGASYS [Suspect]
     Active Substance: PEGINTERFERON ALFA-2A
     Route: 058

REACTIONS (9)
  - Rash pruritic [Unknown]
  - Adverse drug reaction [Unknown]
  - Blood disorder [Unknown]
  - Malaise [Unknown]
  - Vomiting [Unknown]
  - Irritability [Unknown]
  - Injection site reaction [Unknown]
  - White blood cell count decreased [Unknown]
  - Feeling abnormal [Unknown]
